FAERS Safety Report 7361491-X (Version None)
Quarter: 2011Q1

REPORT INFORMATION
  Report Type: 
  Country: None (occurrence: None)
  Receive Date: 20110318
  Receipt Date: 20110307
  Transmission Date: 20110831
  Serious: Yes (Other)
  Sender: FDA-Public Use
  Company Number: PHEH2009US14368

PATIENT
  Sex: Female
  Weight: 67 kg

DRUGS (6)
  1. EXJADE [Suspect]
     Indication: IRON OVERLOAD
     Dosage: 1000 MG DAILY
     Route: 048
  2. DOAN'S [Concomitant]
  3. TYLENOL-500 [Concomitant]
  4. REVLIMID [Concomitant]
  5. ACETAMINOPHEN [Concomitant]
  6. EXJADE [Suspect]
     Indication: MYELODYSPLASTIC SYNDROME
     Dosage: 1500 MG, DAILY
     Route: 048
     Dates: start: 20090924

REACTIONS (6)
  - ASTHENIA [None]
  - ANXIETY [None]
  - DEPRESSION [None]
  - PANIC ATTACK [None]
  - DIARRHOEA [None]
  - PAIN [None]
